FAERS Safety Report 7830374-0 (Version None)
Quarter: 2011Q4

REPORT INFORMATION
  Report Type: 
  Country: None (occurrence: None)
  Receive Date: 20111021
  Receipt Date: 20111012
  Transmission Date: 20120403
  Serious: Yes (Other)
  Sender: FDA-Public Use
  Company Number: US-US-EMD SERONO, INC.-231511J10USA

PATIENT
  Sex: Female
  Weight: 111 kg

DRUGS (2)
  1. REBIF [Suspect]
  2. REBIF [Suspect]
     Indication: MULTIPLE SCLEROSIS
     Route: 058
     Dates: start: 20080801, end: 20100801

REACTIONS (4)
  - DEHYDRATION [None]
  - DECREASED APPETITE [None]
  - WEIGHT DECREASED [None]
  - TYPE 2 DIABETES MELLITUS [None]
